FAERS Safety Report 10685367 (Version 3)
Quarter: 2015Q1

REPORT INFORMATION
  Report Type: Spontaneous
  Country: US (occurrence: None)
  Receive Date: 20141229
  Receipt Date: 20150204
  Transmission Date: 20150720
  Serious: Yes (Hospitalization, Other)
  Sender: FDA-Public Use
  Company Number: AXC-2014-000788

PATIENT
  Age: 17 Year
  Sex: Female

DRUGS (3)
  1. MOTRIN [Concomitant]
     Active Substance: IBUPROFEN
  2. BENTYL [Suspect]
     Active Substance: DICYCLOMINE HYDROCHLORIDE
     Indication: PAIN
     Route: 048
     Dates: start: 20141212, end: 20141217
  3. CIPRO /00697201/ [Suspect]
     Active Substance: CIPROFLOXACIN
     Indication: PRODUCT USED FOR UNKNOWN INDICATION
     Dates: start: 20141212, end: 20141217

REACTIONS (3)
  - Acute kidney injury [None]
  - Off label use [None]
  - Lymphadenitis [None]

NARRATIVE: CASE EVENT DATE: 2014
